FAERS Safety Report 10682657 (Version 2)
Quarter: 2014Q4

REPORT INFORMATION
  Report Type: Spontaneous
  Country: US (occurrence: US)
  Receive Date: 20141230
  Receipt Date: 20141230
  Transmission Date: 20150529
  Serious: Yes (Death)
  Sender: FDA-Public Use
  Company Number: US-PFIZER INC-2014148200

PATIENT
  Age: 91 Year
  Sex: Male

DRUGS (21)
  1. REVATIO [Suspect]
     Active Substance: SILDENAFIL CITRATE
     Indication: PULMONARY HYPERTENSION
     Dosage: 20 MG, 3X/DAY
     Dates: start: 201204
  2. FUROSEMIDE. [Concomitant]
     Active Substance: FUROSEMIDE
     Indication: CARDIAC FAILURE CONGESTIVE
     Dosage: 80 MG, 1X/DAY
  3. LANSOPRAZOLE. [Concomitant]
     Active Substance: LANSOPRAZOLE
     Indication: GASTROOESOPHAGEAL REFLUX DISEASE
     Dosage: 30 MG, 2X/DAY
  4. XANAX [Concomitant]
     Active Substance: ALPRAZOLAM
     Indication: ANXIETY
     Dosage: 0.25 MG, 3X/DAY
  5. LANTUS [Concomitant]
     Active Substance: INSULIN GLARGINE
     Indication: DIABETES MELLITUS
     Dosage: 17 IU, 1X/DAY (BED TIME)
  6. LOTEMAX [Concomitant]
     Active Substance: LOTEPREDNOL ETABONATE
     Indication: MACULAR DEGENERATION
  7. AZOPT [Concomitant]
     Active Substance: BRINZOLAMIDE
     Indication: RETINOPATHY
     Dosage: 1 GTT, 2X/DAY (1 DROP TWICE DAILY IN THE RIGHT EYE)
  8. SPIRONOLACTONE. [Concomitant]
     Active Substance: SPIRONOLACTONE
     Indication: CARDIAC FAILURE CONGESTIVE
     Dosage: 25 MG, DAILY
  9. ALPHAGAN P [Concomitant]
     Active Substance: BRIMONIDINE TARTRATE
     Indication: RETINOPATHY
     Dosage: 1 GTT, 2X/DAY (TWICE DAILY IN THE RIGHT EYE 1 DROP)
  10. ALPHAGAN P [Concomitant]
     Active Substance: BRIMONIDINE TARTRATE
     Indication: GLAUCOMA
  11. ZIOPTAN [Concomitant]
     Active Substance: TAFLUPROST
     Indication: GLAUCOMA
  12. FINASTERIDE. [Concomitant]
     Active Substance: FINASTERIDE
     Indication: PROSTATOMEGALY
     Dosage: 5 MG, DAILY
  13. ALPHAGAN P [Concomitant]
     Active Substance: BRIMONIDINE TARTRATE
     Indication: MACULAR DEGENERATION
  14. LOTEMAX [Concomitant]
     Active Substance: LOTEPREDNOL ETABONATE
     Indication: GLAUCOMA
  15. AZOPT [Concomitant]
     Active Substance: BRINZOLAMIDE
     Indication: GLAUCOMA
  16. ZIOPTAN [Concomitant]
     Active Substance: TAFLUPROST
     Indication: RETINOPATHY
     Dosage: 1 GTT, DAILY (1 DROP DAILY IN EACH EYE)
  17. CARVEDILOL. [Concomitant]
     Active Substance: CARVEDILOL
     Indication: HYPERTENSION
     Dosage: 3.125 MG, 2X/DAY
  18. NOVOLOG INSULIN [Concomitant]
     Indication: DIABETES MELLITUS
     Dosage: 18 UNITS AT BREAKFAST, 5 UNITS AT LUNCH AND 12 UNITS AT BEDTIME
  19. LOTEMAX [Concomitant]
     Active Substance: LOTEPREDNOL ETABONATE
     Indication: RETINOPATHY
     Dosage: 1 GTT, UNK (1 DROP IN THE RIGHT EYE )
  20. AZOPT [Concomitant]
     Active Substance: BRINZOLAMIDE
     Indication: MACULAR DEGENERATION
  21. ZIOPTAN [Concomitant]
     Active Substance: TAFLUPROST
     Indication: MACULAR DEGENERATION

REACTIONS (1)
  - Cardiac failure congestive [Fatal]
